FAERS Safety Report 12423769 (Version 2)
Quarter: 2016Q4

REPORT INFORMATION
  Report Type: Spontaneous
  Country: US (occurrence: US)
  Receive Date: 20160601
  Receipt Date: 20161128
  Transmission Date: 20170207
  Serious: Yes (Other)
  Sender: FDA-Public Use
  Company Number: US-NOVEN PHARMACEUTICALS, INC.-US2015000925

PATIENT

DRUGS (22)
  1. DAYTRANA [Suspect]
     Active Substance: METHYLPHENIDATE
     Indication: ILL-DEFINED DISORDER
  2. ATROVIN P [Concomitant]
  3. FENTANYL. [Concomitant]
     Active Substance: FENTANYL
     Dosage: 25 MG, EVERY 72 HOURS
  4. POTASSIUM CHLORIDE. [Concomitant]
     Active Substance: POTASSIUM CHLORIDE
     Dosage: 10 MEQ, UNK
  5. DAYTRANA [Suspect]
     Active Substance: METHYLPHENIDATE
     Indication: MAJOR DEPRESSION
     Dosage: UNK UNK, UNKNOWN
     Route: 062
     Dates: start: 2007
  6. VIIBRYD [Concomitant]
     Active Substance: VILAZODONE HYDROCHLORIDE
     Dosage: 40 MG, QD
  7. LEVOTHYROXINE SODIUM. [Concomitant]
     Active Substance: LEVOTHYROXINE SODIUM
     Dosage: 150 ?G, QD
  8. AXERT [Concomitant]
     Active Substance: ALMOTRIPTAN MALATE
     Indication: MIGRAINE
  9. DAYTRANA [Suspect]
     Active Substance: METHYLPHENIDATE
     Indication: HYPERSOMNIA
     Dosage: 60 MG, USING TWO 30 MG PATCHES
     Route: 062
  10. VITAMIN C [Concomitant]
     Active Substance: ASCORBIC ACID
     Dosage: 1000 MG, UNK
  11. VOLTAREN [Concomitant]
     Active Substance: DICLOFENAC SODIUM
  12. CYANOCOBALAMIN. [Concomitant]
     Active Substance: CYANOCOBALAMIN
     Dosage: 1000 ?G, ONCE A MONTH
  13. FLONASE [Concomitant]
     Active Substance: FLUTICASONE PROPIONATE
  14. MULTIVITAMIN [Concomitant]
     Active Substance: VITAMINS
  15. DAYTRANA [Suspect]
     Active Substance: METHYLPHENIDATE
     Indication: ATTENTION DEFICIT/HYPERACTIVITY DISORDER
     Dosage: 50 MG, USING ONE 20 MG AND ONE 30 MG PATCH
     Route: 062
  16. CELEBREX [Concomitant]
     Active Substance: CELECOXIB
     Dosage: 200 MG, BID
  17. ALBUTEROL. [Concomitant]
     Active Substance: ALBUTEROL
  18. DAYTRANA [Suspect]
     Active Substance: METHYLPHENIDATE
     Indication: ANXIETY
  19. VITAMIN D3 [Concomitant]
     Active Substance: CHOLECALCIFEROL
  20. XANAX [Concomitant]
     Active Substance: ALPRAZOLAM
     Dosage: 1 MG, BID
  21. FAMOTIDINE. [Concomitant]
     Active Substance: FAMOTIDINE
     Dosage: 20 MG, BID
  22. PRISTIQ EXTENDED-RELEASE [Concomitant]
     Active Substance: DESVENLAFAXINE SUCCINATE
     Dosage: 100 MG, QD

REACTIONS (5)
  - Wrong technique in product usage process [Not Recovered/Not Resolved]
  - Suicidal ideation [Unknown]
  - Prescribed overdose [Not Recovered/Not Resolved]
  - Off label use [Unknown]
  - Drug effect decreased [Not Recovered/Not Resolved]

NARRATIVE: CASE EVENT DATE: 2007
